FAERS Safety Report 19168443 (Version 1)
Quarter: 2021Q2

REPORT INFORMATION
  Report Type: Spontaneous
  Country: US (occurrence: US)
  Receive Date: 20210422
  Receipt Date: 20210422
  Transmission Date: 20210717
  Serious: Yes (Other)
  Sender: FDA-Public Use
  Company Number: US-AMGEN-USASP2021059418

PATIENT
  Age: 59 Year
  Sex: Female

DRUGS (3)
  1. PROLIA [Suspect]
     Active Substance: DENOSUMAB
     Indication: PROPHYLAXIS
     Dosage: UNK, QMO
     Route: 065
     Dates: start: 20210322
  2. XGEVA [Suspect]
     Active Substance: DENOSUMAB
     Indication: PLASMA CELL MYELOMA
     Dosage: UNK, QMO
     Route: 065
  3. XGEVA [Suspect]
     Active Substance: DENOSUMAB
     Indication: PROPHYLAXIS

REACTIONS (3)
  - Renal impairment [Unknown]
  - Off label use [Unknown]
  - Hypocalcaemia [Unknown]

NARRATIVE: CASE EVENT DATE: 20210322
